FAERS Safety Report 16099804 (Version 2)
Quarter: 2019Q2

REPORT INFORMATION
  Report Type: Spontaneous
  Country: ES (occurrence: ES)
  Receive Date: 20190321
  Receipt Date: 20190402
  Transmission Date: 20190711
  Serious: Yes (Other)
  Sender: FDA-Public Use
  Company Number: ES-TEVA-2019-ES-1026979

PATIENT
  Age: 48 Year
  Sex: Female

DRUGS (1)
  1. OMEPRAZOLE. [Suspect]
     Active Substance: OMEPRAZOLE
     Indication: ANTACID THERAPY
     Dosage: SHE TOOK OVERDOSE: 20MG, EVERY 6-8 HOURS (INSTEAD OF THE PRESCRIBED DOSE OF 20 MG/DAY); WITH ERRO...
     Route: 065

REACTIONS (3)
  - Drug abuse [Unknown]
  - Overdose [Unknown]
  - Symmetrical drug-related intertriginous and flexural exanthema [Recovered/Resolved]
